FAERS Safety Report 14367405 (Version 1)
Quarter: 2018Q1

REPORT INFORMATION
  Report Type: Spontaneous
  Country: US (occurrence: US)
  Receive Date: 20180109
  Receipt Date: 20180109
  Transmission Date: 20180509
  Serious: No
  Sender: FDA-Public Use
  Company Number: US-TARO-2017TAR00946

PATIENT
  Age: 52 Year
  Sex: Female
  Weight: 62.13 kg

DRUGS (3)
  1. B VITAMINS [Concomitant]
     Active Substance: CYANOCOBALAMIN\DEXPANTHENOL\NIACINAMIDE\PYRIDOXINE HYDROCHLORIDE\RIBOFLAVIN 5^-PHOSPHATE SODIUM\THIAMINE HYDROCHLORIDE\VITAMIN B COMPLEX
     Dosage: UNK, 1X/DAY
  2. METRONIDAZOLE GEL USP, 1% [Suspect]
     Active Substance: METRONIDAZOLE
     Indication: ROSACEA
     Dosage: ^THIN COVER ON HER FACE^, 1X/DAY EVERY MORNING
     Route: 061
     Dates: start: 20171030
  3. VITAMIN D [Concomitant]
     Active Substance: CHOLECALCIFEROL
     Dosage: UNK, 1X/DAY

REACTIONS (4)
  - Product substitution issue [Not Recovered/Not Resolved]
  - Product quality issue [Not Recovered/Not Resolved]
  - Rash [Not Recovered/Not Resolved]
  - Pruritus [Not Recovered/Not Resolved]

NARRATIVE: CASE EVENT DATE: 2017
